FAERS Safety Report 5548311-0 (Version None)
Quarter: 2007Q4

REPORT INFORMATION
  Report Type: 
  Country: None (occurrence: None)
  Receive Date: 20071211
  Receipt Date: 20070402
  Transmission Date: 20080405
  Serious: No
  Sender: FDA-Public Use
  Company Number: US-AMGEN-KDL217875

PATIENT
  Sex: Female

DRUGS (2)
  1. ENBREL [Suspect]
     Indication: RHEUMATOID ARTHRITIS
     Route: 058
     Dates: start: 19990301
  2. METHOTREXATE [Concomitant]
     Route: 048

REACTIONS (8)
  - ABDOMINAL PAIN UPPER [None]
  - CORRECTIVE LENS USER [None]
  - EYE PAIN [None]
  - EYE SWELLING [None]
  - HYPERAESTHESIA [None]
  - NODULE [None]
  - OCULAR HYPERAEMIA [None]
  - STOMATITIS [None]
